FAERS Safety Report 10028684 (Version 3)
Quarter: 2014Q3

REPORT INFORMATION
  Report Type: Spontaneous
  Country: IT (occurrence: IT)
  Receive Date: 20140321
  Receipt Date: 20140710
  Transmission Date: 20150326
  Serious: Yes (Hospitalization, Other)
  Sender: FDA-Public Use
  Company Number: IT-GLAXOSMITHKLINE-B0978746A

PATIENT
  Age: 53 Year
  Sex: Female

DRUGS (3)
  1. COUMADIN [Concomitant]
     Active Substance: WARFARIN SODIUM
     Dosage: 5MG PER DAY
  2. PROPAFENONE. [Suspect]
     Active Substance: PROPAFENONE
     Indication: ATRIAL FIBRILLATION
     Dosage: 650MG PER DAY
     Route: 048
     Dates: start: 20130113, end: 20140112
  3. ENALAPRIL [Concomitant]
     Active Substance: ENALAPRIL
     Dosage: 20MG PER DAY
     Route: 048

REACTIONS (2)
  - Drug ineffective [Recovering/Resolving]
  - Atrial fibrillation [Recovering/Resolving]

NARRATIVE: CASE EVENT DATE: 20140112
